FAERS Safety Report 14871725 (Version 2)
Quarter: 2018Q2

REPORT INFORMATION
  Report Type: Spontaneous
  Country: US (occurrence: US)
  Receive Date: 20180509
  Receipt Date: 20180612
  Transmission Date: 20180711
  Serious: Yes (Other)
  Sender: FDA-Public Use
  Company Number: US-EXELIXIS-CABO-18013916

PATIENT
  Age: 69 Year
  Sex: Male

DRUGS (3)
  1. CABOMETYX [Suspect]
     Active Substance: CABOZANTINIB S-MALATE
     Dosage: 40 MG, 5 DAYS/WEEK
     Route: 048
  2. ^MUSHROOMS^ [Suspect]
     Active Substance: HERBALS
     Indication: PRODUCT USED FOR UNKNOWN INDICATION
  3. CABOMETYX [Suspect]
     Active Substance: CABOZANTINIB S-MALATE
     Indication: NEUROENDOCRINE CARCINOMA OF THE SKIN
     Dosage: 60 MG, QD
     Route: 048

REACTIONS (5)
  - Abdominal pain [Unknown]
  - Malignant neoplasm progression [Unknown]
  - Spinal column stenosis [Unknown]
  - Diarrhoea [Unknown]
  - Hypertension [Unknown]
